FAERS Safety Report 6875429-2 (Version None)
Quarter: 2010Q3

REPORT INFORMATION
  Report Type: 
  Country: None (occurrence: None)
  Receive Date: 20100727
  Receipt Date: 20100714
  Transmission Date: 20110219
  Serious: Yes (Hospitalization, Other)
  Sender: FDA-Public Use
  Company Number: US-PFIZER INC-2010088850

PATIENT
  Sex: Female

DRUGS (1)
  1. XALATAN [Suspect]
     Indication: GLAUCOMA
     Dosage: 1 DROP, DAILY IN EACH EYE AT NIGHT
     Route: 047
     Dates: start: 20080101

REACTIONS (4)
  - CEREBROVASCULAR ACCIDENT [None]
  - EYE IRRITATION [None]
  - EYE PAIN [None]
  - VISION BLURRED [None]
